FAERS Safety Report 25199407 (Version 1)
Quarter: 2025Q2

REPORT INFORMATION
  Report Type: Spontaneous
  Country: US (occurrence: None)
  Receive Date: 20250415
  Receipt Date: 20250415
  Transmission Date: 20250717
  Serious: Yes (Life-Threatening, Other)
  Sender: FDA-CTU
  Company Number: None

PATIENT
  Age: 37 Year
  Sex: Female
  Weight: 50.4 kg

DRUGS (14)
  1. TRIKAFTA [Suspect]
     Active Substance: ELEXACAFTOR\IVACAFTOR\TEZACAFTOR
     Indication: Cystic fibrosis
     Dates: start: 20210713
  2. SODIUM CHLORIDE [Concomitant]
     Active Substance: SODIUM CHLORIDE
  3. PULMOZYME [Concomitant]
     Active Substance: DORNASE ALFA
  4. SYMBICORT [Concomitant]
     Active Substance: BUDESONIDE\FORMOTEROL FUMARATE DIHYDRATE
  5. ZENPEP [Concomitant]
     Active Substance: PANCRELIPASE AMYLASE\PANCRELIPASE LIPASE\PANCRELIPASE PROTEASE
  6. GABAPENTIN [Concomitant]
     Active Substance: GABAPENTIN
  7. PAXIL [Concomitant]
     Active Substance: PAROXETINE HYDROCHLORIDE
  8. TRAZODONE [Concomitant]
     Active Substance: TRAZODONE HYDROCHLORIDE
  9. VITAMINS [Concomitant]
     Active Substance: VITAMINS
  10. VITAMIN D [Concomitant]
     Active Substance: VITAMIN D NOS
  11. BIOTIN [Concomitant]
     Active Substance: BIOTIN
  12. GLUCOSAMINE [Concomitant]
     Active Substance: GLUCOSAMINE
  13. IBUPROFEN [Concomitant]
     Active Substance: IBUPROFEN
  14. ALEVE [Concomitant]
     Active Substance: NAPROXEN SODIUM

REACTIONS (8)
  - Premenstrual dysphoric disorder [None]
  - Mood swings [None]
  - Suicidal ideation [None]
  - Disturbance in attention [None]
  - Anxiety [None]
  - Job dissatisfaction [None]
  - Loss of personal independence in daily activities [None]
  - Intermenstrual bleeding [None]

NARRATIVE: CASE EVENT DATE: 20230601
